FAERS Safety Report 9647626 (Version 4)
Quarter: 2014Q1

REPORT INFORMATION
  Report Type: Spontaneous
  Country: US (occurrence: US)
  Receive Date: 20131028
  Receipt Date: 20140108
  Transmission Date: 20141002
  Serious: No
  Sender: FDA-Public Use
  Company Number: US-009507513-1310USA012240

PATIENT
  Age: 25 Year
  Sex: Female
  Weight: 72.11 kg

DRUGS (5)
  1. NEXPLANON [Suspect]
     Indication: CONTRACEPTION
     Dosage: UNK
     Route: 059
     Dates: start: 20130605, end: 20131024
  2. NEXPLANON [Suspect]
     Dosage: UNK
     Route: 059
     Dates: start: 20131024
  3. VITAMINS (UNSPECIFIED) [Concomitant]
     Dosage: UNK, QD
     Route: 048
     Dates: start: 20121226, end: 20131024
  4. ZOVIRAX [Concomitant]
     Dosage: 400 MG, QD
     Route: 048
     Dates: start: 20130409, end: 20131024
  5. MICRONOR [Concomitant]
     Dosage: 0.35 MG, QD
     Route: 048
     Dates: start: 20130501, end: 20131024

REACTIONS (3)
  - Device breakage [Unknown]
  - Product quality issue [Unknown]
  - Menstruation irregular [Unknown]
